FAERS Safety Report 6467804-5 (Version None)
Quarter: 2009Q4

REPORT INFORMATION
  Report Type: 
  Country: None (occurrence: None)
  Receive Date: 20091119
  Receipt Date: 20091002
  Transmission Date: 20100525
  Serious: Yes (Hospitalization)
  Sender: FDA-Public Use
  Company Number: WAES 0910USA00362

PATIENT
  Age: 78 Year
  Sex: Female

DRUGS (7)
  1. JANUVIA [Suspect]
     Indication: DIABETES MELLITUS
     Dosage: 100 MG/DAILY/PO
     Route: 048
     Dates: start: 20090201, end: 20090317
  2. ACTOS [Concomitant]
  3. PREVACID [Concomitant]
  4. ALPRAZOLAM [Concomitant]
  5. HYDROCHLOROTHIAZIDE (+) TRIAMETER [Concomitant]
  6. LISINOPRIL [Concomitant]
  7. METFORMIN HCL [Concomitant]

REACTIONS (1)
  - ABDOMINAL PAIN [None]
